FAERS Safety Report 12915297 (Version 1)
Quarter: 2016Q4

REPORT INFORMATION
  Report Type: Spontaneous
  Country: US (occurrence: US)
  Receive Date: 20161106
  Receipt Date: 20161106
  Transmission Date: 20170207
  Serious: No
  Sender: FDA-Public Use
  Company Number: US-RELYPSA-RLY2016002659

PATIENT
  Sex: Female

DRUGS (13)
  1. ALLOPURINOL. [Concomitant]
     Active Substance: ALLOPURINOL
  2. PRAVASTATIN SODIUM. [Concomitant]
     Active Substance: PRAVASTATIN SODIUM
  3. CARVEDILOL. [Concomitant]
     Active Substance: CARVEDILOL
  4. CHLORTHALIDONE. [Concomitant]
     Active Substance: CHLORTHALIDONE
  5. SODIUM BICARBONATE. [Concomitant]
     Active Substance: SODIUM BICARBONATE
  6. BENEFIBER [Concomitant]
     Active Substance: STARCH, WHEAT
  7. FERROUS SULFATE. [Concomitant]
     Active Substance: FERROUS SULFATE
  8. VELTASSA [Suspect]
     Active Substance: PATIROMER
     Indication: HYPERKALAEMIA
     Dosage: 8.4 G, QD
     Route: 048
     Dates: start: 20160527
  9. AMLODIPINE BESYLATE. [Concomitant]
     Active Substance: AMLODIPINE BESYLATE
  10. ASPIRIN 81 [Concomitant]
     Active Substance: ASPIRIN
  11. VITAMIN D [Concomitant]
     Active Substance: CHOLECALCIFEROL
  12. FUROSEMIDE. [Concomitant]
     Active Substance: FUROSEMIDE
  13. PARICALCITOL. [Concomitant]
     Active Substance: PARICALCITOL

REACTIONS (1)
  - Constipation [Not Recovered/Not Resolved]
